FAERS Safety Report 18798418 (Version 1)
Quarter: 2021Q1

REPORT INFORMATION
  Report Type: Spontaneous
  Country: DE (occurrence: DE)
  Receive Date: 20210128
  Receipt Date: 20210128
  Transmission Date: 20210419
  Serious: Yes (Other)
  Sender: FDA-Public Use
  Company Number: DE-BRISTOL-MYERS SQUIBB COMPANY-BMS-2021-004665

PATIENT
  Age: 57 Year
  Sex: Male

DRUGS (24)
  1. NELFINAVIR [Suspect]
     Active Substance: NELFINAVIR
     Indication: POLYNEUROPATHY
     Dosage: UNK
     Route: 065
     Dates: start: 1997
  2. D4T [Suspect]
     Active Substance: STAVUDINE
     Indication: POLYNEUROPATHY
     Dosage: UNK
     Route: 065
     Dates: start: 1997
  3. ABACAVIR [ABACAVIR SULFATE] [Suspect]
     Active Substance: ABACAVIR SULFATE
     Indication: PERIPHERAL SENSORY NEUROPATHY
     Dosage: UNK
     Route: 065
     Dates: start: 1997
  4. SUSTIVA [Suspect]
     Active Substance: EFAVIRENZ
     Indication: HIV INFECTION
     Dosage: UNK
     Route: 065
     Dates: start: 1997
  5. NEVIRAPIN [Suspect]
     Active Substance: NEVIRAPINE
     Indication: HIV INFECTION
  6. FTC [Suspect]
     Active Substance: EMTRICITABINE
     Indication: HIV INFECTION
     Dosage: UNK
     Route: 065
     Dates: start: 201808
  7. 3TC [Suspect]
     Active Substance: LAMIVUDINE
     Indication: POLYNEUROPATHY
     Dosage: UNK
     Route: 065
     Dates: start: 1997
  8. D4T [Suspect]
     Active Substance: STAVUDINE
     Indication: HIV INFECTION
  9. TENOFOVIR DISOPROXIL FUMARATE. [Suspect]
     Active Substance: TENOFOVIR DISOPROXIL FUMARATE
     Indication: HIV INFECTION
     Dosage: UNK
     Route: 065
     Dates: start: 1997
  10. FTC [Suspect]
     Active Substance: EMTRICITABINE
     Indication: POLYNEUROPATHY
     Dosage: UNK
     Route: 065
     Dates: start: 1997
  11. NELFINAVIR [Suspect]
     Active Substance: NELFINAVIR
     Indication: HIV INFECTION
  12. NEVIRAPIN [Suspect]
     Active Substance: NEVIRAPINE
     Indication: PERIPHERAL SENSORY NEUROPATHY
     Dosage: UNK
     Route: 065
     Dates: start: 1997
  13. TENOFOVIR ALAFENAMIDE FUMARATE [Suspect]
     Active Substance: TENOFOVIR ALAFENAMIDE FUMARATE
     Dosage: UNK
     Route: 065
     Dates: start: 201808
  14. SAQUINAVIR [Suspect]
     Active Substance: SAQUINAVIR
     Indication: HIV INFECTION
  15. 3TC [Suspect]
     Active Substance: LAMIVUDINE
     Indication: HIV INFECTION
  16. TENOFOVIR ALAFENAMIDE FUMARATE [Suspect]
     Active Substance: TENOFOVIR ALAFENAMIDE FUMARATE
     Indication: PRODUCT USED FOR UNKNOWN INDICATION
     Dosage: UNK
     Route: 065
     Dates: start: 201611
  17. SUSTIVA [Suspect]
     Active Substance: EFAVIRENZ
     Indication: PERIPHERAL SENSORY NEUROPATHY
  18. SAQUINAVIR [Suspect]
     Active Substance: SAQUINAVIR
     Indication: PERIPHERAL SENSORY NEUROPATHY
     Dosage: UNK
     Route: 065
     Dates: start: 1997
  19. BICTEGRAVIR [Suspect]
     Active Substance: BICTEGRAVIR
     Indication: PRODUCT USED FOR UNKNOWN INDICATION
     Dosage: UNK
     Route: 065
     Dates: start: 201808
  20. AZT [Suspect]
     Active Substance: ZIDOVUDINE
     Indication: HIV INFECTION
     Dosage: UNK
     Route: 065
     Dates: start: 1997
  21. AZT [Suspect]
     Active Substance: ZIDOVUDINE
     Indication: PERIPHERAL SENSORY NEUROPATHY
  22. DOLUTEGRAVIR [Suspect]
     Active Substance: DOLUTEGRAVIR
     Indication: PRODUCT USED FOR UNKNOWN INDICATION
     Dosage: UNK
     Route: 065
     Dates: start: 201611
  23. ABACAVIR [ABACAVIR SULFATE] [Suspect]
     Active Substance: ABACAVIR SULFATE
     Indication: HIV INFECTION
  24. TENOFOVIR DISOPROXIL FUMARATE. [Suspect]
     Active Substance: TENOFOVIR DISOPROXIL FUMARATE
     Indication: POLYNEUROPATHY

REACTIONS (8)
  - Lipoatrophy [Unknown]
  - Hypertension [Unknown]
  - Hypercholesterolaemia [Unknown]
  - Glomerular filtration rate decreased [Unknown]
  - Viraemia [Recovering/Resolving]
  - Abdominal mass [Unknown]
  - Proteinuria [Unknown]
  - Coronary artery disease [Unknown]

NARRATIVE: CASE EVENT DATE: 2006
